FAERS Safety Report 8228677-3 (Version None)
Quarter: 2012Q1

REPORT INFORMATION
  Report Type: 
  Country: None (occurrence: None)
  Receive Date: 20120322
  Receipt Date: 20120317
  Transmission Date: 20120608
  Serious: Yes (Death, Other)
  Sender: FDA-Public Use
  Company Number: US-ELI_LILLY_AND_COMPANY-US201203005899

PATIENT
  Sex: Female

DRUGS (1)
  1. EFFIENT [Suspect]
     Dosage: 10 MG, UNK
     Route: 048

REACTIONS (3)
  - DEATH [None]
  - ARTERIAL RESTENOSIS [None]
  - DIABETES MELLITUS [None]
